FAERS Safety Report 5534448-9 (Version None)
Quarter: 2007Q4

REPORT INFORMATION
  Report Type: 
  Country: None (occurrence: None)
  Receive Date: 20071205
  Receipt Date: 20071129
  Transmission Date: 20080405
  Serious: Yes (Other)
  Sender: FDA-Public Use
  Company Number: B0495287A

PATIENT
  Age: 74 Year
  Sex: Female
  Weight: 57 kg

DRUGS (14)
  1. ARIXTRA [Suspect]
     Indication: THROMBOSIS PROPHYLAXIS
     Dosage: 2.5MG PER DAY
     Route: 058
     Dates: start: 20071026, end: 20071030
  2. BERIZYM [Concomitant]
     Indication: GASTRIC ULCER
     Dosage: 1.5G PER DAY
     Route: 048
  3. ULCERLMIN [Concomitant]
     Indication: GASTRIC ULCER
     Dosage: 3G PER DAY
     Route: 048
  4. LIPIDIL [Concomitant]
     Dosage: 100MG PER DAY
     Route: 048
  5. ALTAT [Concomitant]
     Indication: GASTRIC ULCER
     Dosage: 75MG PER DAY
     Route: 048
  6. ALESION [Concomitant]
     Indication: ALLERGIC BRONCHITIS
     Dosage: 20MG PER DAY
     Route: 048
  7. UNKNOWN MEDICATION [Concomitant]
     Indication: KERATITIS
     Route: 031
  8. FERROMIA [Concomitant]
     Dosage: 100MG PER DAY
     Route: 048
     Dates: start: 20071016, end: 20071109
  9. LOXONIN [Concomitant]
     Indication: ANALGESIA
     Dosage: 180MG PER DAY
     Route: 048
     Dates: start: 20071024
  10. MUCOSTA [Concomitant]
     Indication: PROPHYLAXIS
     Dosage: 300MG PER DAY
     Route: 048
     Dates: start: 20071024
  11. ATARAX [Concomitant]
     Indication: PREMEDICATION
     Dosage: 25MG PER DAY
     Route: 030
     Dates: start: 20071024, end: 20071024
  12. UNKNOWN MEDICATION [Concomitant]
     Dosage: 1000ML PER DAY
     Route: 042
     Dates: start: 20071024, end: 20071024
  13. LACTEC-G [Concomitant]
     Dosage: 1000ML PER DAY
     Route: 042
     Dates: start: 20071024, end: 20071024
  14. PANSPORIN [Concomitant]
     Indication: INFECTION PROPHYLAXIS
     Dosage: 2G PER DAY
     Route: 042
     Dates: start: 20071024, end: 20071029

REACTIONS (3)
  - ATRIAL FIBRILLATION [None]
  - DIZZINESS [None]
  - PALPITATIONS [None]
